FAERS Safety Report 20404115 (Version 1)
Quarter: 2022Q1

REPORT INFORMATION
  Report Type: Report from Study
  Country: US (occurrence: US)
  Receive Date: 20220131
  Receipt Date: 20220131
  Transmission Date: 20220423
  Serious: Yes (Life-Threatening)
  Sender: FDA-Public Use
  Company Number: US-UCBSA-2022003379

PATIENT
  Age: 7 Year
  Sex: Female

DRUGS (3)
  1. MIDAZOLAM [Suspect]
     Active Substance: MIDAZOLAM
     Indication: Seizure
     Dosage: UNK
     Dates: start: 202109
  2. MIDAZOLAM [Suspect]
     Active Substance: MIDAZOLAM
     Indication: Respiration abnormal
  3. MIDAZOLAM [Suspect]
     Active Substance: MIDAZOLAM
     Indication: Off label use

REACTIONS (3)
  - Respiratory arrest [Not Recovered/Not Resolved]
  - Seizure [Not Recovered/Not Resolved]
  - Off label use [Unknown]

NARRATIVE: CASE EVENT DATE: 20210901
